FAERS Safety Report 17308516 (Version 1)
Quarter: 2020Q1

REPORT INFORMATION
  Report Type: Spontaneous
  Country: US (occurrence: US)
  Receive Date: 20200123
  Receipt Date: 20200123
  Transmission Date: 20200409
  Serious: Yes (Death, Other)
  Sender: FDA-Public Use
  Company Number: US-TEVA-2020-US-1172828

PATIENT
  Sex: Male

DRUGS (4)
  1. DIAZEPAM. [Suspect]
     Active Substance: DIAZEPAM
     Route: 065
     Dates: start: 20140303
  2. HYDROCODONE BITARTRATE AND ACETAMINOPHEN [Suspect]
     Active Substance: ACETAMINOPHEN\HYDROCODONE BITARTRATE
     Indication: PAIN
     Dosage: 10/500MG
     Route: 065
     Dates: start: 20130106
  3. NEURONTIN [Suspect]
     Active Substance: GABAPENTIN
     Indication: PAIN
     Route: 065
  4. TRAMADOL HCL [Suspect]
     Active Substance: TRAMADOL HYDROCHLORIDE
     Route: 065
     Dates: start: 20140303

REACTIONS (4)
  - Cerebrovascular accident [Fatal]
  - Anxiety [Unknown]
  - Condition aggravated [Unknown]
  - Drug dependence [Unknown]
